FAERS Safety Report 7321446-8 (Version None)
Quarter: 2011Q1

REPORT INFORMATION
  Report Type: 
  Country: None (occurrence: None)
  Receive Date: 20110216
  Receipt Date: 20110202
  Transmission Date: 20110831
  Serious: Yes (Hospitalization)
  Sender: FDA-Public Use
  Company Number: 2011MA001044

PATIENT
  Age: 39 Year

DRUGS (6)
  1. CLONAZEPAM [Suspect]
     Dosage: 80 MG
  2. HYDROXYZINE [Suspect]
     Dosage: 6 G
  3. CON MEDS [Concomitant]
  4. TRAMADOL HYDROCHLORIDE [Suspect]
     Dosage: 10 G
  5. GABAPERTINE (NO PREF. NAME) [Suspect]
     Dosage: 1 G
  6. PREV MEDS [Concomitant]

REACTIONS (11)
  - HAEMORRHAGE [None]
  - CARDIAC ARREST [None]
  - ARTERIAL THROMBOSIS LIMB [None]
  - RENAL FAILURE ACUTE [None]
  - OVERDOSE [None]
  - PERIPHERAL ISCHAEMIA [None]
  - HAEMODIALYSIS [None]
  - BRAIN DEATH [None]
  - SHOCK [None]
  - SEPTIC SHOCK [None]
  - TOXICITY TO VARIOUS AGENTS [None]
